FAERS Safety Report 11149486 (Version 2)
Quarter: 2015Q2

REPORT INFORMATION
  Report Type: Spontaneous
  Country: CH (occurrence: CH)
  Receive Date: 20150529
  Receipt Date: 20150612
  Transmission Date: 20150821
  Serious: Yes (Death)
  Sender: FDA-Public Use
  Company Number: CH-BAYER-2015-279424

PATIENT
  Age: 36 Year
  Sex: Female
  Weight: 50 kg

DRUGS (7)
  1. STIVARGA [Suspect]
     Active Substance: REGORAFENIB
     Indication: METASTASES TO LIVER
  2. DUROGESIC [Concomitant]
     Active Substance: FENTANYL
  3. STIVARGA [Suspect]
     Active Substance: REGORAFENIB
     Indication: EWING^S SARCOMA METASTATIC
     Dosage: 40 MG, TID
     Dates: start: 20150526, end: 20150527
  4. TARGIN [Concomitant]
     Active Substance: NALOXONE HYDROCHLORIDE\OXYCODONE HYDROCHLORIDE
  5. STIVARGA [Suspect]
     Active Substance: REGORAFENIB
     Indication: METASTASES TO BONE
  6. PANTOZOL [Concomitant]
     Active Substance: PANTOPRAZOLE SODIUM
  7. STIVARGA [Suspect]
     Active Substance: REGORAFENIB
     Indication: METASTASES TO LUNG

REACTIONS (2)
  - Product use issue [None]
  - Ewing^s sarcoma metastatic [Fatal]

NARRATIVE: CASE EVENT DATE: 20150529
